FAERS Safety Report 15259750 (Version 1)
Quarter: 2018Q3

REPORT INFORMATION
  Report Type: Spontaneous
  Country: US (occurrence: US)
  Receive Date: 20180809
  Receipt Date: 20180809
  Transmission Date: 20181010
  Serious: No
  Sender: FDA-Public Use
  Company Number: US-LEXICON PHARMACEUTICALS, INC-18-1606-00869

PATIENT
  Sex: Male

DRUGS (12)
  1. CLOZAPINE. [Concomitant]
     Active Substance: CLOZAPINE
  2. DIFLUCAN [Concomitant]
     Active Substance: FLUCONAZOLE
  3. SERTRALINE [Concomitant]
     Active Substance: SERTRALINE HYDROCHLORIDE
  4. TAMSULOSIN [Concomitant]
     Active Substance: TAMSULOSIN
  5. LOPERAMIDE [Concomitant]
     Active Substance: LOPERAMIDE
  6. TAB?A?VITE [Concomitant]
  7. RANITIDINE. [Concomitant]
     Active Substance: RANITIDINE
  8. LEVOTHYROXINE. [Concomitant]
     Active Substance: LEVOTHYROXINE
  9. TELOTRISTAT ETHYL [Suspect]
     Active Substance: TELOTRISTAT ETHYL
     Indication: CARCINOID SYNDROME
     Route: 048
     Dates: start: 20170714
  10. FINASTERIDE. [Concomitant]
     Active Substance: FINASTERIDE
  11. PROCHLORPERAZINE. [Concomitant]
     Active Substance: PROCHLORPERAZINE
  12. PROPRANOLOL [Concomitant]
     Active Substance: PROPRANOLOL HYDROCHLORIDE

REACTIONS (1)
  - Decreased appetite [Unknown]
